FAERS Safety Report 10969373 (Version 1)
Quarter: 2015Q1

REPORT INFORMATION
  Report Type: Spontaneous
  Country: NL (occurrence: None)
  Receive Date: 20150327
  Receipt Date: 20150327
  Transmission Date: 20150721
  Serious: Yes (Life-Threatening, Other)
  Sender: FDA-Public Use
  Company Number: 2015COR00059

PATIENT

DRUGS (1)
  1. METHYLPHENIDATE (METHYLPHENIDATE) UNKNOWN [Suspect]
     Active Substance: METHYLPHENIDATE

REACTIONS (3)
  - Toxicity to various agents [None]
  - Suicide attempt [None]
  - Incorrect route of drug administration [None]
